FAERS Safety Report 4435406-8 (Version None)
Quarter: 2004Q3

REPORT INFORMATION
  Report Type: 
  Country: None (occurrence: None)
  Receive Date: 20040826
  Receipt Date: 20040819
  Transmission Date: 20050211
  Serious: Yes (Life-Threatening)
  Sender: FDA-Public Use
  Company Number: 04H-082-0271183-00

PATIENT
  Sex: Male
  Weight: 4.19 kg

DRUGS (2)
  1. CIMETIDINE HCL [Suspect]
     Indication: GASTROINTESTINAL HAEMORRHAGE
     Dosage: 30 MG, 1 IN 6 HR, INTRAVENOUS;  36 HRS OF LIFE - 120 HRS OF LIFE
     Route: 042
  2. TOLAZOLINE [Concomitant]

REACTIONS (1)
  - HYPOXIA [None]
